FAERS Safety Report 20047505 (Version 1)
Quarter: 2021Q4

REPORT INFORMATION
  Report Type: Spontaneous
  Country: PL (occurrence: PL)
  Receive Date: 20211109
  Receipt Date: 20211109
  Transmission Date: 20220303
  Serious: Yes (Other)
  Sender: FDA-Public Use
  Company Number: None

PATIENT
  Age: 65 Year
  Sex: Male
  Weight: 87 kg

DRUGS (1)
  1. DOCETAXEL [Suspect]
     Active Substance: DOCETAXEL
     Indication: Prostate cancer
     Dosage: 150 MG
     Route: 042
     Dates: start: 20210126, end: 20210126

REACTIONS (1)
  - Hyperkalaemia [Unknown]

NARRATIVE: CASE EVENT DATE: 20210217
